FAERS Safety Report 6868939-5 (Version None)
Quarter: 2010Q3

REPORT INFORMATION
  Report Type: 
  Country: None (occurrence: None)
  Receive Date: 20100722
  Receipt Date: 20080717
  Transmission Date: 20110219
  Serious: No
  Sender: FDA-Public Use
  Company Number: US-PFIZER INC-2008049032

PATIENT
  Sex: Female
  Weight: 76.363 kg

DRUGS (13)
  1. CHANTIX [Suspect]
     Indication: SMOKING CESSATION THERAPY
     Route: 048
     Dates: start: 20071001
  2. WELLBUTRIN [Suspect]
  3. MORPHINE SULFATE [Concomitant]
  4. PERCOCET [Concomitant]
  5. AMITRIPTYLINE HYDROCHLORIDE [Concomitant]
  6. DIAZEPAM [Concomitant]
  7. IBUPROFEN [Concomitant]
  8. LEVOXYL [Concomitant]
  9. MIRALAX [Concomitant]
  10. LEVOTHYROXINE SODIUM [Concomitant]
  11. ACIPHEX [Concomitant]
  12. LIDODERM [Concomitant]
  13. FLUTICASONE PROPIONATE [Concomitant]

REACTIONS (4)
  - DEPRESSED MOOD [None]
  - DEPRESSION [None]
  - INCORRECT DOSE ADMINISTERED [None]
  - IRRITABILITY [None]
